FAERS Safety Report 5045494-6 (Version None)
Quarter: 2006Q2

REPORT INFORMATION
  Report Type: 
  Country: None (occurrence: None)
  Receive Date: 20060601
  Receipt Date: 20060418
  Transmission Date: 20061013
  Serious: No
  Sender: FDA-Public Use
  Company Number: 2006-BP-03762BP

PATIENT
  Sex: Male

DRUGS (19)
  1. SPIRIVA [Suspect]
     Indication: CHRONIC OBSTRUCTIVE PULMONARY DISEASE
     Dosage: 18 MCG (18 MCG, 1 IN 1 D), IH
     Route: 055
     Dates: start: 20040101
  2. SPIRIVA [Suspect]
     Indication: EMPHYSEMA
     Dosage: 18 MCG (18 MCG, 1 IN 1 D), IH
     Route: 055
     Dates: start: 20040101
  3. SPIRIVA [Suspect]
     Indication: EMPHYSEMA
  4. ZETIA [Concomitant]
  5. B12 RESIN [Concomitant]
  6. ASPIRIN [Concomitant]
  7. CITALOPRAM (CTALOPRAM) [Concomitant]
  8. CITALOPRAM HYDROBROMIDE [Concomitant]
  9. CO Q10 [Concomitant]
  10. COZAAR [Concomitant]
  11. DARVOCET [Concomitant]
  12. FLOMAX [Concomitant]
  13. GUAIFENESIN (GUAIFENESIN) [Concomitant]
  14. NTG (GLYCERYL TRINITRATE) [Concomitant]
  15. RANITIDINE [Concomitant]
  16. THEOPHYLLINE [Concomitant]
  17. TIAZAC HCL ER [Concomitant]
  18. ACETAMINOPHEN [Concomitant]
  19. CLOPIDOGEL BISULFATE [Concomitant]

REACTIONS (1)
  - WHEEZING [None]
